FAERS Safety Report 6895484-3 (Version None)
Quarter: 2010Q3

REPORT INFORMATION
  Report Type: 
  Country: None (occurrence: None)
  Receive Date: 20100802
  Receipt Date: 20100723
  Transmission Date: 20110219
  Serious: Yes (Life-Threatening, Other)
  Sender: FDA-Public Use
  Company Number: PHHY2010US49117

PATIENT
  Sex: Female

DRUGS (3)
  1. RECLAST [Suspect]
     Dosage: UNK
     Dates: start: 20090608
  2. PAIN KILLERS [Suspect]
  3. SLEEPING PILLS [Suspect]

REACTIONS (12)
  - ABASIA [None]
  - BACK PAIN [None]
  - HEADACHE [None]
  - HYPOKALAEMIA [None]
  - HYPOKINESIA [None]
  - INFUSION SITE EROSION [None]
  - INFUSION SITE INFECTION [None]
  - INSOMNIA [None]
  - PAIN [None]
  - PAIN IN EXTREMITY [None]
  - PANIC ATTACK [None]
  - PARALYSIS [None]
